FAERS Safety Report 7443810-9 (Version None)
Quarter: 2011Q2

REPORT INFORMATION
  Report Type: 
  Country: None (occurrence: None)
  Receive Date: 20110428
  Receipt Date: 20110418
  Transmission Date: 20111010
  Serious: Yes (Death, Hospitalization)
  Sender: FDA-Public Use
  Company Number: US-BAXTER-2011BH010285

PATIENT
  Age: 64 Year
  Sex: Female
  Weight: 90 kg

DRUGS (1)
  1. DIANEAL [Suspect]
     Indication: PERITONEAL DIALYSIS
     Route: 033
     Dates: start: 20090901, end: 20110410

REACTIONS (10)
  - SEPSIS [None]
  - CONFUSIONAL STATE [None]
  - REFUSAL OF TREATMENT BY RELATIVE [None]
  - ENCEPHALITIS [None]
  - LETHARGY [None]
  - LOWER LIMB FRACTURE [None]
  - UNRESPONSIVE TO STIMULI [None]
  - ABDOMINAL PAIN [None]
  - FALL [None]
  - QUALITY OF LIFE DECREASED [None]
